FAERS Safety Report 7942317 (Version 8)
Quarter: 2013Q2

REPORT INFORMATION
  Report Type: Report from Study
  Country: US (occurrence: US)
  Receive Date: 20110512
  Receipt Date: 20130612
  Transmission Date: 20140414
  Serious: Yes (Death, Hospitalization)
  Sender: FDA-Public Use
  Company Number: US-BRISTOL-MYERS SQUIBB COMPANY-15339294

PATIENT
  Age: 83 Year
  Sex: Male

DRUGS (14)
  1. IPILIMUMAB [Suspect]
     Indication: MALIGNANT MELANOMA
     Dosage: 270MG:21JUL-21JUL10?264MG:11AUG-11AUG10?267MG:22SEP-22SEP10?NO.OF COURSES:4
     Route: 042
     Dates: start: 20100721, end: 20100922
  2. ALLOPURINOL [Concomitant]
     Dosage: DOSE:100MG BID
     Route: 048
     Dates: start: 20100611
  3. FUROSEMIDE [Concomitant]
     Route: 048
     Dates: start: 20100611
  4. ATENOLOL [Concomitant]
     Route: 048
     Dates: start: 20100611
  5. RESVERATROL [Concomitant]
     Route: 048
  6. TURMERIC [Concomitant]
     Route: 048
  7. LOVASTATIN [Concomitant]
     Dosage: AT BED TIME
     Route: 048
     Dates: start: 20100611
  8. RANITIDINE [Concomitant]
     Dosage: AT BED TIME
     Route: 048
     Dates: start: 20100611
  9. ASPIRIN [Concomitant]
     Dosage: EVENY OTHER DAY
     Route: 048
     Dates: start: 20100611
  10. PREDNISONE [Concomitant]
     Dosage: 60MG IN THE MNG AND 20MG IN THE EVENING
     Route: 048
     Dates: start: 20100909
  11. FISH OIL [Concomitant]
  12. CENTRUM SILVER [Concomitant]
  13. IMODIUM [Concomitant]
  14. DIFLUCAN [Concomitant]
     Dates: start: 20101104, end: 20101105

REACTIONS (8)
  - Malignant neoplasm progression [Fatal]
  - Atrial fibrillation [Not Recovered/Not Resolved]
  - Dyspnoea [Not Recovered/Not Resolved]
  - Colitis [Recovered/Resolved]
  - Gastrointestinal haemorrhage [Recovered/Resolved]
  - Pneumonia [Recovered/Resolved]
  - Diarrhoea [Recovered/Resolved]
  - Pyrexia [Recovered/Resolved]
